FAERS Safety Report 10370588 (Version 1)
Quarter: 2014Q3

REPORT INFORMATION
  Report Type: Spontaneous
  Country: CA (occurrence: CA)
  Receive Date: 20140808
  Receipt Date: 20140808
  Transmission Date: 20150326
  Serious: Yes (Other)
  Sender: FDA-Public Use
  Company Number: CA-ASTELLAS-2014US009857

PATIENT
  Sex: Male

DRUGS (4)
  1. ADVAGRAF [Suspect]
     Active Substance: TACROLIMUS
     Route: 048
  2. ADVAGRAF [Suspect]
     Active Substance: TACROLIMUS
     Route: 048
  3. ADVAGRAF [Suspect]
     Active Substance: TACROLIMUS
     Indication: RENAL TRANSPLANT
     Route: 048
     Dates: start: 201312
  4. ADVAGRAF [Suspect]
     Active Substance: TACROLIMUS
     Route: 048

REACTIONS (2)
  - Neuralgia [Unknown]
  - Muscle spasms [Unknown]
